FAERS Safety Report 12980687 (Version 3)
Quarter: 2018Q4

REPORT INFORMATION
  Report Type: Spontaneous
  Country: CO (occurrence: CO)
  Receive Date: 20161128
  Receipt Date: 20181114
  Transmission Date: 20190204
  Serious: Yes (Hospitalization, Disabling, Other)
  Sender: FDA-Public Use
  Company Number: CO-AMGEN-COLSP2016167811

PATIENT
  Age: 83 Year
  Sex: Female

DRUGS (1)
  1. ENBREL [Suspect]
     Active Substance: ETANERCEPT
     Indication: RHEUMATOID ARTHRITIS
     Dosage: 50 MG, WEEKLY
     Route: 058
     Dates: start: 2008

REACTIONS (5)
  - Movement disorder [Unknown]
  - Shock [Unknown]
  - Senile dementia [Unknown]
  - Fall [Unknown]
  - Brain hypoxia [Unknown]

NARRATIVE: CASE EVENT DATE: 2015
